FAERS Safety Report 20233030 (Version 3)
Quarter: 2022Q1

REPORT INFORMATION
  Report Type: Report from Study
  Country: CA (occurrence: CA)
  Receive Date: 20211227
  Receipt Date: 20220307
  Transmission Date: 20220423
  Serious: Yes (Other)
  Sender: FDA-Public Use
  Company Number: CA-TAKEDA-2021TUS081516

PATIENT
  Age: 37 Year
  Sex: Female

DRUGS (5)
  1. VEDOLIZUMAB [Suspect]
     Active Substance: VEDOLIZUMAB
     Indication: Colitis ulcerative
     Dosage: 300 MILLIGRAM
     Route: 042
     Dates: start: 20211207
  2. VEDOLIZUMAB [Suspect]
     Active Substance: VEDOLIZUMAB
     Dosage: 300 MILLIGRAM
     Route: 042
     Dates: end: 20220124
  3. Betnesol [Concomitant]
     Dosage: UNK
     Dates: start: 20180901
  4. Cortiment [Concomitant]
     Dosage: 9 MILLIGRAM, QD
     Dates: start: 20210920
  5. Salofalk [Concomitant]
     Dosage: 4.8 GRAM
     Dates: start: 20180901

REACTIONS (3)
  - Colitis ulcerative [Unknown]
  - Headache [Unknown]
  - Fatigue [Unknown]

NARRATIVE: CASE EVENT DATE: 20211209
